FAERS Safety Report 5726803-9 (Version None)
Quarter: 2008Q2

REPORT INFORMATION
  Report Type: 
  Country: None (occurrence: None)
  Receive Date: 20080502
  Receipt Date: 20080421
  Transmission Date: 20081010
  Serious: Yes (Other)
  Sender: FDA-Public Use
  Company Number: US-PFIZER INC-2008035751

PATIENT
  Sex: Female
  Weight: 81.818 kg

DRUGS (3)
  1. DILANTIN [Suspect]
     Indication: EPILEPSY
  2. DILANTIN [Interacting]
     Indication: EPILEPSY
     Dates: start: 19580101
  3. ANTIBIOTICS [Interacting]
     Indication: INFECTION

REACTIONS (8)
  - DIZZINESS [None]
  - DRUG INTERACTION [None]
  - DRUG TOXICITY [None]
  - HYPERSENSITIVITY [None]
  - INFECTION [None]
  - NEUROPATHY PERIPHERAL [None]
  - OSTEOPENIA [None]
  - SURGERY [None]
